FAERS Safety Report 16767212 (Version 1)
Quarter: 2019Q4

REPORT INFORMATION
  Report Type: Spontaneous
  Country: US (occurrence: US)
  Receive Date: 20190902
  Receipt Date: 20190902
  Transmission Date: 20200122
  Serious: No
  Sender: FDA-Public Use
  Company Number: None

PATIENT
  Age: 40 Year
  Sex: Female
  Weight: 68.4 kg

DRUGS (7)
  1. WELLBUTRIN [Concomitant]
     Active Substance: BUPROPION HYDROCHLORIDE
  2. LAMICTAL [Concomitant]
     Active Substance: LAMOTRIGINE
  3. DEPLIN [Concomitant]
     Active Substance: LEVOMEFOLATE CALCIUM
  4. VITAMIN D [Concomitant]
     Active Substance: VITAMIN D NOS
  5. LIDOCAINE. [Suspect]
     Active Substance: LIDOCAINE
     Indication: ORAL SURGERY
     Dosage: ?          OTHER ROUTE:INJECTED INTO MOUTH FOR PAIN?
     Dates: start: 20190829, end: 20190829
  6. CALCIUM [Concomitant]
     Active Substance: CALCIUM
  7. MAGNESIUM [Concomitant]
     Active Substance: MAGNESIUM

REACTIONS (5)
  - Muscle twitching [None]
  - Syncope [None]
  - Dizziness [None]
  - Feeling hot [None]
  - Nausea [None]

NARRATIVE: CASE EVENT DATE: 20190829
